FAERS Safety Report 9611760 (Version 4)
Quarter: 2013Q4

REPORT INFORMATION
  Report Type: Report from Study
  Country: US (occurrence: US)
  Receive Date: 20131010
  Receipt Date: 20131031
  Transmission Date: 20140711
  Serious: Yes (Hospitalization)
  Sender: FDA-Public Use
  Company Number: US-JNJFOC-20130917416

PATIENT
  Age: 7 Year
  Sex: Female
  Weight: 29.9 kg

DRUGS (16)
  1. CISAPRIDE [Suspect]
     Indication: GASTROOESOPHAGEAL REFLUX DISEASE
     Dosage: VIA G TUBE
     Route: 065
     Dates: start: 20131003, end: 20131018
  2. CISAPRIDE [Suspect]
     Indication: GASTROOESOPHAGEAL REFLUX DISEASE
     Route: 065
     Dates: start: 20130905, end: 20130909
  3. CISAPRIDE [Suspect]
     Indication: GASTROOESOPHAGEAL REFLUX DISEASE
     Route: 065
     Dates: start: 20131018
  4. FLOVENT [Concomitant]
     Indication: COUGH
     Route: 055
     Dates: start: 20100329
  5. IVIG [Concomitant]
     Indication: IMMUNODEFICIENCY COMMON VARIABLE
     Route: 042
     Dates: start: 20101216, end: 20130909
  6. MOMETASONE [Concomitant]
     Indication: DERMATITIS ATOPIC
     Route: 061
     Dates: start: 20110410
  7. NORDITROPIN [Concomitant]
     Indication: GROWTH HORMONE DEFICIENCY
     Route: 065
     Dates: start: 20121015
  8. FLONASE [Concomitant]
     Indication: HYPERSENSITIVITY
     Route: 045
     Dates: start: 20100811
  9. FLONASE [Concomitant]
     Indication: CHRONIC SINUSITIS
     Route: 045
     Dates: start: 20100811
  10. ALBUTEROL [Concomitant]
     Indication: COUGH
     Route: 055
     Dates: start: 20100301
  11. CELECOXIB [Concomitant]
     Indication: ARTHRALGIA
     Route: 048
     Dates: start: 20130201
  12. GABAPENTIN [Concomitant]
     Indication: ABDOMINAL PAIN
     Route: 048
     Dates: start: 20130723, end: 20131017
  13. PREVACID [Concomitant]
     Indication: GASTROOESOPHAGEAL REFLUX DISEASE
     Route: 065
     Dates: start: 20130723
  14. 6-MERCAPTOPURINE [Concomitant]
     Indication: ABDOMINAL PAIN
     Route: 065
     Dates: start: 20130723
  15. VANCOMYCIN [Concomitant]
     Indication: INFECTION PROPHYLAXIS
     Route: 042
     Dates: start: 20130917, end: 20130925
  16. ZOSYN [Concomitant]
     Indication: BACTERIAL INFECTION
     Route: 042
     Dates: start: 20130917, end: 20130925

REACTIONS (4)
  - Obstruction [Not Recovered/Not Resolved]
  - Abdominal pain [Not Recovered/Not Resolved]
  - Small intestinal obstruction [Not Recovered/Not Resolved]
  - Ileostomy closure [Not Recovered/Not Resolved]
